FAERS Safety Report 5133336-X (Version None)
Quarter: 2006Q4

REPORT INFORMATION
  Report Type: 
  Country: None (occurrence: None)
  Receive Date: 20060831
  Receipt Date: 20060616
  Transmission Date: 20070319
  Serious: No
  Sender: FDA-Public Use
  Company Number: 2006-BP-06906BP

PATIENT
  Age: 76 Year
  Sex: Female

DRUGS (9)
  1. SPIRIVA [Suspect]
     Dosage: 18 MCG (18 MCG,1 IN 1 D),IH
  2. DIOVAN [Concomitant]
  3. NEXIUM [Concomitant]
  4. METOCLOPRAMIDE [Concomitant]
  5. TOPROL-XL [Concomitant]
  6. POTASSIUM CHLORIDE [Concomitant]
  7. AVACOR (ALL OTHER THERAPEUTIC PRODUCTS) [Concomitant]
  8. CELEXA [Concomitant]
  9. ALBUTEROL [Concomitant]

REACTIONS (1)
  - CHEST DISCOMFORT [None]
